FAERS Safety Report 9460659 (Version 1)
Quarter: 2013Q3

REPORT INFORMATION
  Report Type: Spontaneous
  Country: RU (occurrence: RU)
  Receive Date: 20130815
  Receipt Date: 20130815
  Transmission Date: 20140515
  Serious: Yes (Other)
  Sender: FDA-Public Use
  Company Number: RU-ELI_LILLY_AND_COMPANY-RU201308001740

PATIENT
  Age: 65 Year
  Sex: Female

DRUGS (1)
  1. HUMULIN REGULAR [Suspect]
     Dosage: UNK, UNKNOWN
     Route: 058

REACTIONS (1)
  - Urticaria [Recovered/Resolved]
